FAERS Safety Report 10964504 (Version 1)
Quarter: 2015Q1

REPORT INFORMATION
  Report Type: Spontaneous
  Country: US (occurrence: None)
  Receive Date: 20150226
  Receipt Date: 20150226
  Transmission Date: 20150721
  Serious: Yes (Other)
  Sender: FDA-Public Use
  Company Number: TPA2012A01517

PATIENT
  Age: 72 Year
  Sex: Male
  Weight: 88.45 kg

DRUGS (12)
  1. METFORMIN [Concomitant]
     Active Substance: METFORMIN HYDROCHLORIDE
  2. GLUCOTROL [Concomitant]
     Active Substance: GLIPIZIDE
  3. GLIPIZIDE (GLIPIZIDE) [Concomitant]
     Active Substance: GLIPIZIDE
  4. ACTOS [Suspect]
     Active Substance: PIOGLITAZONE HYDROCHLORIDE
     Indication: TYPE 2 DIABETES MELLITUS
     Dates: start: 20100604, end: 20110717
  5. AVANDIA (ROSIGLITAZONE MALEATE) [Concomitant]
  6. JANUVIA [Concomitant]
     Active Substance: SITAGLIPTIN PHOSPHATE
  7. STARLIX (NATEGLINIDE) [Concomitant]
  8. HUMALOG [Concomitant]
     Active Substance: INSULIN LISPRO
  9. GLUCOTROL XL (GLIPIZIDE) [Concomitant]
  10. LEVEMIR [Concomitant]
     Active Substance: INSULIN DETEMIR
  11. DIABETA [Concomitant]
     Active Substance: GLYBURIDE
  12. LANTUS [Concomitant]
     Active Substance: INSULIN GLARGINE

REACTIONS (1)
  - Bladder cancer [None]

NARRATIVE: CASE EVENT DATE: 20110607
